FAERS Safety Report 9087258 (Version 1)
Quarter: 2013Q1

REPORT INFORMATION
  Report Type: Report from Study
  Country: US (occurrence: US)
  Receive Date: 20130130
  Receipt Date: 20130130
  Transmission Date: 20140127
  Serious: No
  Sender: FDA-Public Use
  Company Number: US-ABBOTT-12P-163-0953639-00

PATIENT
  Age: 46 Year
  Sex: Female

DRUGS (13)
  1. HUMIRA 40 MG/0.8 ML PEN [Suspect]
     Indication: RHEUMATOID ARTHRITIS
  2. METHOTREXATE [Concomitant]
     Indication: PRODUCT USED FOR UNKNOWN INDICATION
  3. METOPROLOL [Concomitant]
     Indication: HEART RATE INCREASED
  4. MAVIK [Concomitant]
     Indication: HYPERTENSION
  5. PREDNISONE [Concomitant]
     Indication: RHEUMATOID ARTHRITIS
  6. HYDROCODONE [Concomitant]
     Indication: PAIN
  7. AMBIEN [Concomitant]
     Indication: INSOMNIA
  8. ATORVASTATIN [Concomitant]
     Indication: BLOOD CHOLESTEROL ABNORMAL
  9. ZYRTEC [Concomitant]
     Indication: SEASONAL ALLERGY
  10. PROMETHAZINE [Concomitant]
     Indication: NAUSEA
  11. MULTIVITAMIN [Concomitant]
     Indication: SUPPLEMENTATION THERAPY
  12. VIT D [Concomitant]
     Indication: VITAMIN SUPPLEMENTATION
  13. FOLIC ACID [Concomitant]
     Indication: VITAMIN SUPPLEMENTATION

REACTIONS (3)
  - Injection site bruising [Not Recovered/Not Resolved]
  - Fungal infection [Not Recovered/Not Resolved]
  - Urinary tract infection [Not Recovered/Not Resolved]
